FAERS Safety Report 21292644 (Version 3)
Quarter: 2023Q2

REPORT INFORMATION
  Report Type: Other
  Country: US (occurrence: None)
  Receive Date: 20220905
  Receipt Date: 20230613
  Transmission Date: 20230722
  Serious: Yes (Hospitalization)
  Sender: FDA-Public Use
  Company Number: US-ROCHE-3171761

PATIENT
  Age: 70 Year
  Sex: Female

DRUGS (9)
  1. XOLAIR [Suspect]
     Active Substance: OMALIZUMAB
     Indication: Asthma
     Dosage: INJECT 300 MILLIGRAMS SUBCUTANEOUSLY EVERY 4 WEEK
     Route: 058
  2. XOLAIR [Suspect]
     Active Substance: OMALIZUMAB
  3. XOLAIR [Suspect]
     Active Substance: OMALIZUMAB
     Route: 058
     Dates: start: 2013
  4. XOLAIR [Suspect]
     Active Substance: OMALIZUMAB
  5. PULMICORT RESPULES [Concomitant]
     Active Substance: BUDESONIDE
     Route: 055
     Dates: start: 202212
  6. ALBUTEROL [Concomitant]
     Active Substance: ALBUTEROL
     Dosage: SOMETIMES ONLY ONCE A WEEK
     Route: 055
     Dates: start: 2022
  7. METFORMIN [Concomitant]
     Active Substance: METFORMIN HYDROCHLORIDE
     Indication: Diabetes mellitus
     Route: 048
     Dates: start: 2010
  8. SERTRALINE [Concomitant]
     Active Substance: SERTRALINE HYDROCHLORIDE
     Dosage: AT NIGHT TIME
     Route: 048
  9. SPIRONOLACTONE [Concomitant]
     Active Substance: SPIRONOLACTONE
     Route: 048
     Dates: start: 2003

REACTIONS (8)
  - Hypotension [Recovered/Resolved]
  - COVID-19 [Unknown]
  - Illness [Unknown]
  - Asthma [Not Recovered/Not Resolved]
  - Mycoplasma infection [Recovered/Resolved]
  - Fatigue [Unknown]
  - Pyrexia [Recovered/Resolved]
  - Cough [Recovered/Resolved]

NARRATIVE: CASE EVENT DATE: 20220101
